FAERS Safety Report 5034600-5 (Version None)
Quarter: 2006Q2

REPORT INFORMATION
  Report Type: 
  Country: None (occurrence: None)
  Receive Date: 20060621
  Receipt Date: 20060607
  Transmission Date: 20061013
  Serious: Yes (Death, Life-Threatening)
  Sender: FDA-Public Use
  Company Number: 2006S1000120

PATIENT
  Age: 4 Day
  Sex: Male

DRUGS (6)
  1. INOMAX [Suspect]
     Indication: LUNG DISORDER
     Dosage: 5 PPM; INH_GAS; INH; CONT; SEE IMAGE
     Route: 055
     Dates: start: 20060508, end: 20060514
  2. INOMAX [Suspect]
     Indication: PROPHYLAXIS
     Dosage: 5 PPM; INH_GAS; INH; CONT; SEE IMAGE
     Route: 055
     Dates: start: 20060508, end: 20060514
  3. CEFOTAXIME SODIUM [Concomitant]
  4. FLAGYL [Concomitant]
  5. MORPHINE [Concomitant]
  6. DOPAMINE HCL [Concomitant]

REACTIONS (3)
  - HAEMODYNAMIC INSTABILITY [None]
  - INTESTINAL PERFORATION [None]
  - NEONATAL DISORDER [None]
